FAERS Safety Report 17565157 (Version 1)
Quarter: 2020Q1

REPORT INFORMATION
  Report Type: Spontaneous
  Country: CN (occurrence: CN)
  Receive Date: 20200320
  Receipt Date: 20200320
  Transmission Date: 20200409
  Serious: Yes (Other)
  Sender: FDA-Public Use
  Company Number: NVSC2020CN080093

PATIENT
  Age: 56 Year
  Sex: Female

DRUGS (1)
  1. LAPATINIB [Suspect]
     Active Substance: LAPATINIB
     Indication: GALLBLADDER CANCER
     Dosage: 1250 MG, QD (4 CYCLES)
     Route: 065

REACTIONS (4)
  - Gallbladder cancer [Unknown]
  - Liver injury [Unknown]
  - Malignant neoplasm progression [Unknown]
  - Product use in unapproved indication [Unknown]
